FAERS Safety Report 4841346-2 (Version None)
Quarter: 2005Q4

REPORT INFORMATION
  Report Type: 
  Country: None (occurrence: None)
  Receive Date: 20051130
  Receipt Date: 20051125
  Transmission Date: 20060501
  Serious: Yes (Hospitalization)
  Sender: FDA-Public Use
  Company Number: DE-GLAXOSMITHKLINE-D0048113A

PATIENT
  Sex: Female

DRUGS (2)
  1. SEROXAT [Suspect]
     Route: 048
  2. QUILONUM [Suspect]
     Route: 048

REACTIONS (3)
  - ANTIPSYCHOTIC DRUG LEVEL INCREASED [None]
  - SINOATRIAL BLOCK [None]
  - SYNCOPE [None]
